FAERS Safety Report 24535391 (Version 1)
Quarter: 2024Q4

REPORT INFORMATION
  Report Type: Spontaneous
  Country: US (occurrence: US)
  Receive Date: 20241022
  Receipt Date: 20241022
  Transmission Date: 20250115
  Serious: No
  Sender: JAZZ
  Company Number: US-JAZZ PHARMACEUTICALS-2024-US-016938

PATIENT
  Age: 24 Year
  Sex: Female

DRUGS (1)
  1. XYWAV [Suspect]
     Active Substance: CALCIUM OXYBATE\MAGNESIUM OXYBATE\POTASSIUM OXYBATE\SODIUM OXYBATE
     Indication: Product used for unknown indication
     Dosage: 5GM AT BEDTIME AND 4.75GM 2.5 TO 4 HOURS LATER

REACTIONS (3)
  - Sleep-related eating disorder [Unknown]
  - Prescribed overdose [Unknown]
  - Intentional dose omission [Unknown]
